FAERS Safety Report 17735533 (Version 1)
Quarter: 2020Q2

REPORT INFORMATION
  Report Type: Spontaneous
  Country: SE (occurrence: SE)
  Receive Date: 20200501
  Receipt Date: 20200501
  Transmission Date: 20200714
  Serious: Yes (Other)
  Sender: FDA-Public Use
  Company Number: SE-TEVA-2020-SE-1228387

PATIENT
  Sex: Female

DRUGS (5)
  1. BEHEPAN [Concomitant]
  2. BISOPROLOL [Concomitant]
     Active Substance: BISOPROLOL
  3. OESTRING [Concomitant]
     Active Substance: ESTRADIOL
  4. OMEPRAZOLE. [Suspect]
     Active Substance: OMEPRAZOLE
     Indication: HIATUS HERNIA
     Dosage: 20 MG
     Route: 048
     Dates: start: 20170929, end: 20200310
  5. LOSARTAN. [Concomitant]
     Active Substance: LOSARTAN

REACTIONS (2)
  - Dyspnoea [Recovered/Resolved]
  - Malaise [Recovered/Resolved]
